FAERS Safety Report 15150223 (Version 1)
Quarter: 2018Q3

REPORT INFORMATION
  Report Type: Spontaneous
  Country: DE (occurrence: DE)
  Receive Date: 20180716
  Receipt Date: 20180716
  Transmission Date: 20181010
  Serious: Yes (Disabling)
  Sender: FDA-Public Use
  Company Number: DE-US WORLDMEDS, LLC-STA_00017201

PATIENT
  Sex: Male

DRUGS (1)
  1. APOMORPHINE HYDROCHLORIDE [Suspect]
     Active Substance: APOMORPHINE HYDROCHLORIDE
     Indication: PRODUCT USED FOR UNKNOWN INDICATION
     Dosage: 6.5 MG   9 AM?10PM
     Route: 058

REACTIONS (3)
  - Dermatitis [Unknown]
  - Nodule [Unknown]
  - Necrosis [Not Recovered/Not Resolved]
